FAERS Safety Report 7241166-8 (Version None)
Quarter: 2011Q1

REPORT INFORMATION
  Report Type: 
  Country: None (occurrence: None)
  Receive Date: 20110124
  Receipt Date: 20110117
  Transmission Date: 20110831
  Serious: Yes (Death)
  Sender: FDA-Public Use
  Company Number: IE-AMGEN-IRLSP2011002705

PATIENT
  Sex: Female

DRUGS (9)
  1. ELTROXIN [Concomitant]
  2. ARANESP [Suspect]
     Indication: PRODUCT USED FOR UNKNOWN INDICATION
     Dosage: 20 A?G, 2 TIMES/WK
     Route: 058
  3. FUROSEMIDE [Concomitant]
  4. GALFER [Concomitant]
  5. RAMILO [Concomitant]
  6. NEXIUM [Concomitant]
  7. CRESTOR [Concomitant]
  8. ONE ALPHA [Concomitant]
  9. PLAVIX [Concomitant]

REACTIONS (1)
  - DEATH [None]
